FAERS Safety Report 6566963-3 (Version None)
Quarter: 2010Q1

REPORT INFORMATION
  Report Type: 
  Country: None (occurrence: None)
  Receive Date: 20100202
  Receipt Date: 20100120
  Transmission Date: 20100710
  Serious: Yes (Hospitalization)
  Sender: FDA-Public Use
  Company Number: NL-MEDIMMUNE-MEDI-0010382

PATIENT

DRUGS (1)
  1. SYNAGIS [Suspect]
     Route: 030
     Dates: start: 20091029, end: 20091224

REACTIONS (3)
  - INGUINAL HERNIA [None]
  - PERITONITIS [None]
  - UMBILICAL HERNIA [None]
